FAERS Safety Report 6508135-4 (Version None)
Quarter: 2009Q4

REPORT INFORMATION
  Report Type: 
  Country: None (occurrence: None)
  Receive Date: 20091221
  Receipt Date: 20091210
  Transmission Date: 20100525
  Serious: Yes (Other)
  Sender: FDA-Public Use
  Company Number: DK-JNJFOC-20091203892

PATIENT
  Age: 9 Year
  Sex: Male
  Weight: 27 kg

DRUGS (5)
  1. CONCERTA [Suspect]
     Indication: ATTENTION DEFICIT/HYPERACTIVITY DISORDER
     Route: 048
  2. RITALIN [Suspect]
     Indication: ATTENTION DEFICIT/HYPERACTIVITY DISORDER
     Dosage: 5+5+5 MG
     Route: 048
     Dates: start: 20081126
  3. RITALIN [Suspect]
     Dosage: 10 MG X 3
     Route: 048
     Dates: start: 20081126
  4. RITALIN [Suspect]
     Dosage: 20 MG AT 6.30 AM AND 20 MG AT 11.30 TO 12 AM
     Route: 048
     Dates: start: 20081126
  5. RITALIN [Suspect]
     Dosage: 10+10+5 MG
     Route: 048
     Dates: start: 20081126

REACTIONS (4)
  - AGGRESSION [None]
  - DRUG INEFFECTIVE [None]
  - SCREAMING [None]
  - WEIGHT DECREASED [None]
